FAERS Safety Report 13552561 (Version 1)
Quarter: 2017Q2

REPORT INFORMATION
  Report Type: Report from Study
  Country: None (occurrence: US)
  Receive Date: 20170517
  Receipt Date: 20170517
  Transmission Date: 20170830
  Serious: Yes (Hospitalization)
  Sender: FDA-Public Use
  Company Number: US-ABBVIE-17K-163-1975222-00

PATIENT
  Age: 2 Year
  Sex: Female

DRUGS (2)
  1. HUMIRA [Suspect]
     Active Substance: ADALIMUMAB
     Route: 058
     Dates: start: 20170506
  2. HUMIRA [Suspect]
     Active Substance: ADALIMUMAB
     Indication: JUVENILE IDIOPATHIC ARTHRITIS
     Route: 058
     Dates: start: 20170311, end: 20170325

REACTIONS (7)
  - Herpes simplex [Recovered/Resolved]
  - Insomnia [Unknown]
  - Thirst [Unknown]
  - Pain in extremity [Unknown]
  - Oral mucosal blistering [Recovered/Resolved]
  - Seasonal allergy [Unknown]
  - Arthralgia [Unknown]

NARRATIVE: CASE EVENT DATE: 201704
